FAERS Safety Report 23889456 (Version 1)
Quarter: 2024Q2

REPORT INFORMATION
  Report Type: Spontaneous
  Country: DK (occurrence: DK)
  Receive Date: 20240523
  Receipt Date: 20240523
  Transmission Date: 20240715
  Serious: Yes (Death, Hospitalization, Other)
  Sender: FDA-Public Use
  Company Number: None

PATIENT
  Age: 76 Year
  Sex: Male
  Weight: 79.8 kg

DRUGS (2)
  1. KEYTRUDA [Suspect]
     Active Substance: PEMBROLIZUMAB
     Indication: Bladder cancer
     Dosage: PATIENT HAS RECEIVED 3 DOSAGES/TREATMENTS IN TOTAL. THE DOSAGES WERE RECEIVED ON 09JAN2024, 30JAN202
     Route: 042
     Dates: start: 20240109, end: 20240220
  2. CIPROFLOXACIN [Concomitant]
     Active Substance: CIPROFLOXACIN
     Indication: Infection
     Dosage: 500 MILLIGRAM, FREQUENCY 0.5 DAY
     Route: 048
     Dates: start: 20240325

REACTIONS (12)
  - Atrioventricular block complete [Not Recovered/Not Resolved]
  - Immune-mediated myasthenia gravis [Fatal]
  - Myocarditis [Not Recovered/Not Resolved]
  - Eyelid ptosis [Not Recovered/Not Resolved]
  - Dysphagia [Unknown]
  - Orbital myositis [Not Recovered/Not Resolved]
  - Diplopia [Not Recovered/Not Resolved]
  - Muscular weakness [Not Recovered/Not Resolved]
  - Hypoventilation [Unknown]
  - Dyspnoea [Not Recovered/Not Resolved]
  - Respiratory failure [Unknown]
  - Somnolence [Unknown]

NARRATIVE: CASE EVENT DATE: 20240228
